FAERS Safety Report 5366900-3 (Version None)
Quarter: 2007Q2

REPORT INFORMATION
  Report Type: 
  Country: None (occurrence: None)
  Receive Date: 20070622
  Receipt Date: 20070319
  Transmission Date: 20071010
  Serious: No
  Sender: FDA-Public Use
  Company Number: US-ASTRAZENECA-2007UW05308

PATIENT
  Age: 79 Year
  Sex: Female
  Weight: 67.6 kg

DRUGS (5)
  1. RHINOCORT [Suspect]
     Indication: DYSPNOEA
     Dosage: 1 SPRAY EACH NOSTRIL
     Route: 045
     Dates: start: 20070317
  2. LESCOL [Concomitant]
  3. SINGULAIR [Concomitant]
  4. PREVACID [Concomitant]
  5. PAXIL [Concomitant]

REACTIONS (3)
  - HEADACHE [None]
  - INSOMNIA [None]
  - PALPITATIONS [None]
